FAERS Safety Report 17662456 (Version 1)
Quarter: 2020Q2

REPORT INFORMATION
  Report Type: Report from Study
  Country: TH (occurrence: TH)
  Receive Date: 20200413
  Receipt Date: 20200413
  Transmission Date: 20200713
  Serious: Yes (Other)
  Sender: FDA-Public Use
  Company Number: NVSC2019TH047171

PATIENT
  Sex: Male

DRUGS (1)
  1. SCAPHO [Suspect]
     Active Substance: SECUKINUMAB
     Indication: PSORIASIS
     Dosage: 150 MG, UNKNOWN
     Route: 065

REACTIONS (19)
  - Wound [Unknown]
  - Skin haemorrhage [Unknown]
  - Skin tightness [Unknown]
  - Rash [Unknown]
  - Underdose [Unknown]
  - Skin exfoliation [Unknown]
  - Immunodeficiency [Unknown]
  - Hyperthermia [Unknown]
  - Bone pain [Unknown]
  - Pain [Unknown]
  - Skin fissures [Unknown]
  - Hypokinesia [Unknown]
  - Connective tissue disorder [Unknown]
  - Dysstasia [Unknown]
  - Blister [Unknown]
  - Stress [Unknown]
  - Arthralgia [Unknown]
  - Therapeutic product effect incomplete [Unknown]
  - Social fear [Unknown]
